FAERS Safety Report 20225056 (Version 3)
Quarter: 2022Q1

REPORT INFORMATION
  Report Type: Report from Study
  Country: EG (occurrence: EG)
  Receive Date: 20211223
  Receipt Date: 20220127
  Transmission Date: 20220424
  Serious: Yes (Other)
  Sender: FDA-Public Use
  Company Number: EG-002147023-NVSC2021EG294408

PATIENT

DRUGS (2)
  1. RUXOLITINIB [Suspect]
     Active Substance: RUXOLITINIB
     Indication: Myelofibrosis
     Dosage: 15 MG, BID (ONE TABLET IN THE MORNING AND ONE TABLET IN THE NIGHT)
     Route: 048
     Dates: start: 20211128, end: 20211220
  2. RUXOLITINIB [Suspect]
     Active Substance: RUXOLITINIB
     Dosage: 5 MG, BID
     Route: 048
     Dates: start: 20220116

REACTIONS (8)
  - White blood cell count decreased [Not Recovered/Not Resolved]
  - Anaemia [Recovering/Resolving]
  - Fatigue [Recovered/Resolved]
  - Body temperature increased [Recovered/Resolved]
  - Affective disorder [Recovered/Resolved]
  - Myalgia [Recovered/Resolved]
  - Rash macular [Not Recovered/Not Resolved]
  - Toothache [Recovering/Resolving]

NARRATIVE: CASE EVENT DATE: 20211225
